FAERS Safety Report 23848165 (Version 1)
Quarter: 2024Q2

REPORT INFORMATION
  Report Type: Spontaneous
  Country: US (occurrence: None)
  Receive Date: 20240510
  Receipt Date: 20240510
  Transmission Date: 20240715
  Serious: Yes (Other)
  Sender: FDA-Public Use
  Company Number: None

PATIENT
  Age: 75 Year
  Sex: Male
  Weight: 104.4 kg

DRUGS (19)
  1. JARDIANCE [Suspect]
     Active Substance: EMPAGLIFLOZIN
     Indication: Type 2 diabetes mellitus
     Dosage: I TABLET  DAILY ORAL
     Route: 048
  2. ASPIRIN [Concomitant]
     Active Substance: ASPIRIN
  3. ZYLOPRIM [Concomitant]
     Active Substance: ALLOPURINOL
  4. BRILINTA [Concomitant]
     Active Substance: TICAGRELOR
  5. ALDACTONE [Concomitant]
     Active Substance: SPIRONOLACTONE
  6. IMDUR [Concomitant]
     Active Substance: ISOSORBIDE MONONITRATE
  7. MICARDIS [Concomitant]
     Active Substance: TELMISARTAN
  8. ACRPHEX [Concomitant]
  9. LIPITOR [Concomitant]
     Active Substance: ATORVASTATIN CALCIUM
  10. INDERAL [Concomitant]
     Active Substance: PROPRANOLOL HYDROCHLORIDE
  11. CARDURA [Concomitant]
     Active Substance: DOXAZOSIN MESYLATE
  12. ROPINIROLE [Concomitant]
     Active Substance: ROPINIROLE
  13. SALAGEN [Concomitant]
     Active Substance: PILOCARPINE HYDROCHLORIDE
  14. LSANTUS INSULIN, [Concomitant]
  15. ASPART INSULIN, [Concomitant]
  16. JANUVIA [Concomitant]
     Active Substance: SITAGLIPTIN PHOSPHATE
  17. BACLOFEN [Concomitant]
     Active Substance: BACLOFEN
  18. GABAPENTIN [Concomitant]
     Active Substance: GABAPENTIN
  19. LUMIGEN [Concomitant]

REACTIONS (2)
  - Fungal infection [None]
  - Genital odour [None]

NARRATIVE: CASE EVENT DATE: 20240422
